FAERS Safety Report 9223817 (Version 9)
Quarter: 2014Q2

REPORT INFORMATION
  Report Type: Report from Study
  Country: GB (occurrence: GB)
  Receive Date: 20130410
  Receipt Date: 20140422
  Transmission Date: 20141212
  Serious: Yes (Death, Life-Threatening, Hospitalization)
  Sender: FDA-Public Use
  Company Number: GB-AMGEN-GBRCT2013024889

PATIENT
  Age: 69 Year
  Sex: Female
  Weight: 81.7 kg

DRUGS (11)
  1. ETANERCEPT [Suspect]
     Indication: RHEUMATOID ARTHRITIS
     Dosage: 50 MG, WEEKLY
     Route: 058
     Dates: start: 20121211, end: 20130212
  2. ALENDRONIC ACID [Concomitant]
     Indication: OSTEOPENIA
     Dosage: 70 G, QWK
     Dates: start: 200105
  3. ALENDRONIC ACID [Concomitant]
     Dosage: 70 G, WEEKLY
     Route: 048
     Dates: start: 200105
  4. LOSARTAN POTASSIUM [Concomitant]
     Indication: HYPERTENSION
     Dosage: 25 MG, QD
     Route: 048
     Dates: start: 1999
  5. LANSOPRAZOLE [Concomitant]
     Dosage: 30 MG, 1X/DAY
     Route: 048
     Dates: start: 20110225
  6. FOLIC ACID [Concomitant]
     Indication: RHEUMATOID ARTHRITIS
     Dosage: 5 G, 2 IN 1 WK
     Route: 048
     Dates: start: 20110617, end: 20130304
  7. METHOTREXATE SODIUM [Concomitant]
     Indication: RHEUMATOID ARTHRITIS
     Dosage: 20 MG, WEEKLY
     Route: 048
     Dates: start: 20110617, end: 20130304
  8. PARACETAMOL [Concomitant]
     Indication: RHEUMATOID ARTHRITIS
     Dosage: 1000 MG, AS NEEDED
     Route: 048
     Dates: start: 20030624
  9. PREDNISONE [Concomitant]
     Indication: RHEUMATOID ARTHRITIS
     Dosage: 5 MG, 1X/DAY
     Route: 048
     Dates: start: 20030624
  10. SULFASALAZIN [Concomitant]
     Indication: RHEUMATOID ARTHRITIS
     Dosage: 3 G, 1X/DAY
     Route: 048
     Dates: start: 20040221
  11. RANITIDINE [Concomitant]
     Dosage: 300 MG (150 UNIT NOT REPORTED,2 IN 1 D)
     Dates: start: 20130312, end: 20130318

REACTIONS (5)
  - Respiratory failure [Fatal]
  - Renal failure [Not Recovered/Not Resolved]
  - Cough [Not Recovered/Not Resolved]
  - Pneumocystis jirovecii pneumonia [Fatal]
  - Nasopharyngitis [Not Recovered/Not Resolved]
